FAERS Safety Report 25876857 (Version 1)
Quarter: 2025Q4

REPORT INFORMATION
  Report Type: Spontaneous
  Country: US (occurrence: US)
  Receive Date: 20251003
  Receipt Date: 20251003
  Transmission Date: 20260117
  Serious: No
  Sender: APOTEX
  Company Number: US-APOTEX-2025AP029945

PATIENT
  Sex: Male

DRUGS (1)
  1. BRIMONIDINE TARTRATE/TIMOLOL MALEATE OPHTHALMIC SOLUTION [Suspect]
     Active Substance: BRIMONIDINE TARTRATE\TIMOLOL MALEATE
     Indication: Product used for unknown indication
     Dosage: 4 DOSAGE FORM, BID (12 HOURS APART)
     Route: 047

REACTIONS (1)
  - Vision blurred [Unknown]
